FAERS Safety Report 9939341 (Version 1)
Quarter: 2014Q1

REPORT INFORMATION
  Report Type: Report from Study
  Country: US (occurrence: US)
  Receive Date: 20140303
  Receipt Date: 20140303
  Transmission Date: 20141002
  Serious: No
  Sender: FDA-Public Use
  Company Number: US-ABBVIE-13P-163-1036348-00

PATIENT
  Age: 67 Year
  Sex: Female
  Weight: 82.63 kg

DRUGS (5)
  1. HUMIRA [Suspect]
     Indication: PSORIASIS
     Dates: start: 20120926
  2. MELOXICAM [Concomitant]
     Indication: ARTHRITIS
  3. HYDROCODONE [Concomitant]
     Indication: PAIN
  4. ZOLOFT [Concomitant]
     Indication: DEPRESSION
  5. AMLODIPINE [Concomitant]
     Indication: HYPERTENSION

REACTIONS (3)
  - Dizziness [Not Recovered/Not Resolved]
  - Headache [Not Recovered/Not Resolved]
  - Sneezing [Not Recovered/Not Resolved]
